FAERS Safety Report 8423974-0 (Version None)
Quarter: 2012Q2

REPORT INFORMATION
  Report Type: 
  Country: None (occurrence: None)
  Receive Date: 20120608
  Receipt Date: 20120606
  Transmission Date: 20120825
  Serious: Yes (Other)
  Sender: FDA-Public Use
  Company Number: US-WATSON-2012-09824

PATIENT
  Sex: Male
  Weight: 107 kg

DRUGS (2)
  1. CYCLOSPORINE [Suspect]
     Dosage: 100 MG, BID
     Route: 048
     Dates: start: 20101201, end: 20120301
  2. CYCLOSPORINE [Suspect]
     Indication: FIBRILLARY GLOMERULONEPHRITIS
     Dosage: 100 MG, BID
     Route: 048
     Dates: start: 20120301, end: 20120526

REACTIONS (8)
  - DYSGEUSIA [None]
  - DIZZINESS [None]
  - ORAL DISCOMFORT [None]
  - CONVULSION [None]
  - LOSS OF CONSCIOUSNESS [None]
  - URINARY INCONTINENCE [None]
  - NAUSEA [None]
  - HYPERHIDROSIS [None]
